FAERS Safety Report 6802131-5 (Version None)
Quarter: 2010Q2

REPORT INFORMATION
  Report Type: 
  Country: None (occurrence: None)
  Receive Date: 20100629
  Receipt Date: 20080225
  Transmission Date: 20101027
  Serious: No
  Sender: FDA-Public Use
  Company Number: US-PFIZER INC-2007034249

PATIENT
  Sex: Male
  Weight: 106.59 kg

DRUGS (6)
  1. VIAGRA [Suspect]
     Indication: ERECTILE DYSFUNCTION
     Dosage: PRN
     Dates: start: 20070424
  2. TRICOR [Concomitant]
  3. ZOCOR [Concomitant]
  4. HYDROCHLOROTHIAZIDE [Concomitant]
  5. LISINOPRIL [Concomitant]
  6. ACETYLSALICYLIC ACID [Concomitant]

REACTIONS (1)
  - DRUG INEFFECTIVE [None]
